FAERS Safety Report 8595449-X (Version None)
Quarter: 2012Q3

REPORT INFORMATION
  Report Type: 
  Country: None (occurrence: None)
  Receive Date: 20120815
  Receipt Date: 20120725
  Transmission Date: 20120928
  Serious: No
  Sender: FDA-Public Use
  Company Number: US-BRISTOL-MYERS SQUIBB COMPANY-16803165

PATIENT
  Age: 57 Year
  Sex: Female

DRUGS (1)
  1. ONGLYZA [Suspect]
     Dates: start: 20120703

REACTIONS (1)
  - PRURITUS [None]
